FAERS Safety Report 18756117 (Version 1)
Quarter: 2021Q1

REPORT INFORMATION
  Report Type: Spontaneous
  Country: CA (occurrence: CA)
  Receive Date: 20210119
  Receipt Date: 20210119
  Transmission Date: 20210419
  Serious: Yes (Other)
  Sender: FDA-Public Use
  Company Number: CA-GLAXOSMITHKLINE-CA2020AMR245486

PATIENT
  Sex: Female

DRUGS (3)
  1. ZEJULA [Suspect]
     Active Substance: NIRAPARIB
     Indication: OVARIAN EPITHELIAL CANCER RECURRENT
     Dosage: 200 MG, QD
     Route: 048
     Dates: start: 20200724
  2. ZEJULA [Suspect]
     Active Substance: NIRAPARIB
     Indication: PERITONEAL NEOPLASM
  3. ZEJULA [Suspect]
     Active Substance: NIRAPARIB
     Indication: FALLOPIAN TUBE CANCER

REACTIONS (2)
  - Full blood count decreased [Unknown]
  - Malignant neoplasm progression [Unknown]
